FAERS Safety Report 4428709-4 (Version None)
Quarter: 2004Q3

REPORT INFORMATION
  Report Type: 
  Country: None (occurrence: None)
  Receive Date: 20040818
  Receipt Date: 20040108
  Transmission Date: 20050211
  Serious: No
  Sender: FDA-Public Use
  Company Number: US-BRISTOL-MYERS SQUIBB COMPANY-12473591

PATIENT
  Age: 77 Year
  Sex: Female
  Weight: 68 kg

DRUGS (2)
  1. TEQUIN [Suspect]
     Indication: BRONCHITIS
     Dosage: SAMPLE PROVIDED BY THE PHYSICIAN-LIST #1177
     Route: 048
     Dates: start: 20040107
  2. FOSAMAX [Concomitant]

REACTIONS (2)
  - LAZINESS [None]
  - NERVOUSNESS [None]
